FAERS Safety Report 10155177 (Version 1)
Quarter: 2014Q2

REPORT INFORMATION
  Report Type: Spontaneous
  Country: US (occurrence: US)
  Receive Date: 20140506
  Receipt Date: 20140506
  Transmission Date: 20141212
  Serious: Yes (Disabling, Other)
  Sender: FDA-Public Use
  Company Number: US-PFIZER INC-2014123243

PATIENT
  Sex: Male
  Weight: 95.24 kg

DRUGS (4)
  1. VIAGRA [Suspect]
     Indication: ERECTILE DYSFUNCTION
     Dosage: UNK
  2. NITROGLYCERIN [Concomitant]
  3. ZOCOR [Concomitant]
  4. SEROQUEL [Concomitant]

REACTIONS (3)
  - Musculoskeletal disorder [Unknown]
  - Depression [Unknown]
  - Drug ineffective [Unknown]
